FAERS Safety Report 7676917-1 (Version None)
Quarter: 2011Q3

REPORT INFORMATION
  Report Type: 
  Country: None (occurrence: None)
  Receive Date: 20110811
  Receipt Date: 20110802
  Transmission Date: 20111222
  Serious: Yes (Other)
  Sender: FDA-Public Use
  Company Number: PHHY2011US58819

PATIENT
  Sex: Female
  Weight: 145.13 kg

DRUGS (15)
  1. METFORMIN HCL [Concomitant]
     Dosage: 1000 UKN, BID
     Dates: start: 20070701
  2. GILENYA [Suspect]
     Indication: MULTIPLE SCLEROSIS
     Dosage: 0.5 MG, QD
     Dates: start: 20110531, end: 20110611
  3. ASPIRIN [Concomitant]
     Dosage: 81 MG, QD
  4. DITROPAN XL [Concomitant]
     Dosage: 10 UKN, BID
  5. LECITHIN [Concomitant]
     Dosage: UNK UKN, UNK
  6. BACLOFEN [Concomitant]
     Dosage: 10 MG, QD
  7. IMIPRAMINE HYDROCHLORIDE [Concomitant]
     Dosage: 25 UKN, BID
  8. VERAPAMIL [Concomitant]
     Dosage: 160 UKN, BID
  9. ZANAFLEX [Concomitant]
     Dosage: 4 MG, QHS
  10. VITAMIN D [Concomitant]
     Dosage: 1000 UKN, QD
  11. HYDROCHLOROTHIAZIDE [Concomitant]
     Dosage: 25 UKN, QD
  12. TOPROL-XL [Concomitant]
     Dosage: 700 UKN, BID
  13. LISINOPRIL [Concomitant]
     Dosage: 40 MG, UNK
  14. VALIUM [Concomitant]
     Dosage: 5 MG, UNK
  15. CARBAMAZEPINE [Concomitant]
     Dosage: 200 MG, UNK

REACTIONS (6)
  - MACULAR CYST [None]
  - MACULAR OEDEMA [None]
  - VISION BLURRED [None]
  - OCULAR HYPERAEMIA [None]
  - MUSCULAR WEAKNESS [None]
  - GAIT DISTURBANCE [None]
